FAERS Safety Report 25996634 (Version 2)
Quarter: 2025Q4

REPORT INFORMATION
  Report Type: Report from Study
  Country: IN (occurrence: IN)
  Receive Date: 20251104
  Receipt Date: 20251208
  Transmission Date: 20260117
  Serious: Yes (Hospitalization, Other)
  Sender: NOVARTIS
  Company Number: IN-002147023-NVSC2023IN051695

PATIENT
  Age: 83 Year
  Sex: Female

DRUGS (15)
  1. DABRAFENIB [Suspect]
     Active Substance: DABRAFENIB
     Indication: Non-small cell lung cancer
     Dosage: 150 MG, BID
     Route: 065
     Dates: start: 20221119
  2. DABRAFENIB [Suspect]
     Active Substance: DABRAFENIB
     Indication: BRAF gene mutation
     Dosage: UNK
     Route: 048
     Dates: start: 20230119, end: 20230220
  3. DABRAFENIB [Suspect]
     Active Substance: DABRAFENIB
     Dosage: 150 MG, BID
     Route: 065
     Dates: start: 20230221
  4. DABRAFENIB [Suspect]
     Active Substance: DABRAFENIB
     Dosage: 150 MG, OTHER (ALTERNATIVE DAYS)
     Route: 065
     Dates: start: 20230317
  5. DABRAFENIB [Suspect]
     Active Substance: DABRAFENIB
     Dosage: 300 UNK, OTHER (ALTERNATE DAYS)
     Route: 065
  6. DABRAFENIB [Suspect]
     Active Substance: DABRAFENIB
     Dosage: 150 MG, BID (ON ALTERNATE DAYS)
     Route: 065
  7. DABRAFENIB [Suspect]
     Active Substance: DABRAFENIB
     Dosage: 150 MG, BID
     Route: 048
  8. DABRAFENIB [Suspect]
     Active Substance: DABRAFENIB
     Dosage: 150 MG, BID
     Route: 065
  9. TRAMETINIB [Suspect]
     Active Substance: TRAMETINIB
     Indication: Non-small cell lung cancer
     Dosage: 2 MG, QD
     Route: 065
     Dates: start: 20221119
  10. TRAMETINIB [Suspect]
     Active Substance: TRAMETINIB
     Indication: BRAF gene mutation
     Dosage: UNK
     Route: 048
     Dates: start: 20230119, end: 20230220
  11. TRAMETINIB [Suspect]
     Active Substance: TRAMETINIB
     Dosage: 2 MG, QD
     Route: 065
     Dates: start: 20230221
  12. TRAMETINIB [Suspect]
     Active Substance: TRAMETINIB
     Dosage: 2 MG, QD (ALTERNATIVE DAYS)
     Route: 065
     Dates: start: 20230317
  13. TRAMETINIB [Suspect]
     Active Substance: TRAMETINIB
     Dosage: 2 MG, QD (ALTERNATIVE DAYS)
     Route: 065
  14. TRAMETINIB [Suspect]
     Active Substance: TRAMETINIB
     Dosage: 2 MG, QD
     Route: 048
  15. TRAMETINIB [Suspect]
     Active Substance: TRAMETINIB
     Dosage: 2 MG, QD (ALTERNATE DAYS)
     Route: 065

REACTIONS (17)
  - Urinary tract infection [Unknown]
  - Cholangitis [Unknown]
  - Arthritis [Unknown]
  - Arthralgia [Unknown]
  - Drug intolerance [Unknown]
  - Pleural effusion [Unknown]
  - Nasal congestion [Unknown]
  - Orthopnoea [Unknown]
  - Pyrexia [Recovering/Resolving]
  - Haemoptysis [Unknown]
  - Cough [Recovered/Resolved]
  - Dyspnoea [Unknown]
  - Skin disorder [Unknown]
  - Depressed mood [Recovering/Resolving]
  - Cough [Unknown]
  - Off label use [Unknown]
  - Lung opacity [Unknown]

NARRATIVE: CASE EVENT DATE: 20230201
